FAERS Safety Report 7385761-4 (Version None)
Quarter: 2011Q1

REPORT INFORMATION
  Report Type: 
  Country: None (occurrence: None)
  Receive Date: 20110331
  Receipt Date: 20100922
  Transmission Date: 20110831
  Serious: Yes (Hospitalization)
  Sender: FDA-Public Use
  Company Number: US-BAYER-201026633NA

PATIENT
  Sex: Female
  Weight: 62.585 kg

DRUGS (10)
  1. YASMIN [Suspect]
     Indication: ACNE
  2. OCELLA [Suspect]
     Indication: MENORRHAGIA
     Dosage: UNK UNK, UNK
     Route: 048
     Dates: start: 20080501, end: 20081001
  3. NSAID'S [Concomitant]
  4. ALLEGRA [Concomitant]
     Indication: MULTIPLE ALLERGIES
     Dosage: UNK
     Dates: start: 20050101
  5. YASMIN [Suspect]
     Indication: MENORRHAGIA
     Dosage: UNK UNK, UNK
     Route: 048
     Dates: start: 20080501, end: 20081001
  6. MIRALAX [Concomitant]
     Dosage: 17 G, PRN
  7. YASMIN [Suspect]
     Indication: DYSMENORRHOEA
  8. OCELLA [Suspect]
     Indication: DYSMENORRHOEA
  9. OCELLA [Suspect]
     Indication: ACNE
  10. CIPRO [Concomitant]
     Indication: URINARY TRACT INFECTION
     Dosage: UNK
     Dates: start: 20081020

REACTIONS (6)
  - ANXIETY [None]
  - EMOTIONAL DISTRESS [None]
  - INJURY [None]
  - PAIN [None]
  - PULMONARY EMBOLISM [None]
  - PLEURITIC PAIN [None]
